FAERS Safety Report 5381699-2 (Version None)
Quarter: 2007Q2

REPORT INFORMATION
  Report Type: 
  Country: None (occurrence: None)
  Receive Date: 20070629
  Receipt Date: 20060915
  Transmission Date: 20071010
  Serious: Yes (Hospitalization)
  Sender: FDA-Public Use
  Company Number: 2006111675

PATIENT
  Sex: Male

DRUGS (6)
  1. ZOLOFT [Suspect]
     Indication: DEPRESSION
     Dosage: 50 MG (50 MG, 1 IN 1 D)
     Dates: start: 20060101
  2. XANAX [Suspect]
     Indication: DEPRESSION
     Dosage: 1 MG (0.5 MG, 2 IN 1 D)
  3. ALL OTHER THERAPEUTIC PRODUCTS (ALL OTHER THERAPEUTIC PRODUCTS) [Concomitant]
  4. ZOCOR [Concomitant]
  5. AMBIEN 9ZOLPIDEM TARTRATE) [Concomitant]
  6. GLUCOTROL [Concomitant]

REACTIONS (3)
  - DEPRESSION [None]
  - SENSATION OF BLOOD FLOW [None]
  - SOMNOLENCE [None]
